FAERS Safety Report 11968263 (Version 1)
Quarter: 2016Q1

REPORT INFORMATION
  Report Type: Spontaneous
  Country: CN (occurrence: CN)
  Receive Date: 20160127
  Receipt Date: 20160127
  Transmission Date: 20160526
  Serious: Yes (Other)
  Sender: FDA-Public Use
  Company Number: CN-CORDEN PHARMA LATINA S.P.A.-CN-2016COR000025

PATIENT

DRUGS (6)
  1. DEXAMETHASONE. [Suspect]
     Active Substance: DEXAMETHASONE
     Indication: T-CELL LYMPHOMA STAGE IV
     Dosage: 40 MG, DAYS 2-4 EVERY 3 WEEKS
     Route: 042
  2. GRANULOCYTE COLONY STIMULATING FACTOR [Suspect]
     Active Substance: GRANULOCYTE COLONY-STIMULATING FACTOR NOS
     Indication: T-CELL LYMPHOMA STAGE IV
     Dosage: UNK, DAY 7
  3. LEUCOVORIN                         /00566701/ [Suspect]
     Active Substance: LEUCOVORIN
     Indication: T-CELL LYMPHOMA STAGE IV
     Dosage: UNK, 12 H AFTER METHOTREXATE
  4. PEGASPARGASE [Suspect]
     Active Substance: PEGASPARGASE
     Indication: T-CELL LYMPHOMA STAGE IV
     Dosage: 2500 U/M2, DAY 4 EVERY 3 WEEKS
  5. ETOPOSIDE. [Suspect]
     Active Substance: ETOPOSIDE
     Indication: T-CELL LYMPHOMA STAGE IV
     Dosage: 100 MG/M2, DAYS 2-4 EVERY 3 WEEKS
     Route: 042
  6. METHOTREXATE [Suspect]
     Active Substance: METHOTREXATE
     Indication: T-CELL LYMPHOMA STAGE IV
     Dosage: 3.0 G/M2, OVER 24 H ON DAY 1 EVERY 3 WEEKS
     Route: 042

REACTIONS (1)
  - Pancreatitis [Unknown]
